FAERS Safety Report 25955655 (Version 2)
Quarter: 2025Q4

REPORT INFORMATION
  Report Type: Spontaneous
  Country: EU (occurrence: EU)
  Receive Date: 20251024
  Receipt Date: 20251223
  Transmission Date: 20260117
  Serious: Yes (Other)
  Sender: CELLTRION
  Company Number: None

PATIENT

DRUGS (4)
  1. HERZUMA [Suspect]
     Active Substance: TRASTUZUMAB-PKRB
     Indication: Adenocarcinoma gastric
     Dosage: 420 MILLIGRAM
     Route: 042
     Dates: start: 20250618, end: 20251007
  2. PEMBROLIZUMAB [Suspect]
     Active Substance: PEMBROLIZUMAB
     Indication: Adenocarcinoma gastric
     Dosage: 200 MG
     Route: 042
     Dates: start: 20250618, end: 20251007
  3. OXALIPLATIN [Concomitant]
     Active Substance: OXALIPLATIN
     Indication: Adenocarcinoma gastric
     Dosage: 100 MG/MQ
     Route: 042
     Dates: start: 20250618
  4. CAPECITABINE [Concomitant]
     Active Substance: CAPECITABINE
     Indication: Adenocarcinoma gastric
     Dosage: ND
     Route: 048
     Dates: start: 20250618

REACTIONS (1)
  - Immune-mediated lung disease [Not Recovered/Not Resolved]

NARRATIVE: CASE EVENT DATE: 20250915
